FAERS Safety Report 20684546 (Version 2)
Quarter: 2022Q2

REPORT INFORMATION
  Report Type: Report from Study
  Country: US (occurrence: US)
  Receive Date: 20220407
  Receipt Date: 20220418
  Transmission Date: 20220721
  Serious: Yes (Hospitalization, Other)
  Sender: FDA-Public Use
  Company Number: US-TAKEDA-2022TUS021484

PATIENT
  Age: 62 Year
  Sex: Female

DRUGS (2)
  1. HUMAN IMMUNOGLOBULIN G [Suspect]
     Active Substance: HUMAN IMMUNOGLOBULIN G
     Indication: Immunodeficiency common variable
     Dosage: UNK
     Route: 065
     Dates: start: 20191214
  2. HUMAN IMMUNOGLOBULIN G [Suspect]
     Active Substance: HUMAN IMMUNOGLOBULIN G
     Indication: Selective IgG subclass deficiency

REACTIONS (13)
  - Pulmonary thrombosis [Unknown]
  - Thrombosis [Recovering/Resolving]
  - Multiple allergies [Unknown]
  - Muscle strain [Unknown]
  - Fall [Unknown]
  - Limb injury [Unknown]
  - Eye disorder [Unknown]
  - Nasopharyngitis [Unknown]
  - COVID-19 immunisation [Unknown]
  - Sinusitis [Unknown]
  - Contusion [Unknown]
  - Fatigue [Unknown]
  - Back pain [Unknown]

NARRATIVE: CASE EVENT DATE: 20210719
